FAERS Safety Report 12400089 (Version 3)
Quarter: 2016Q3

REPORT INFORMATION
  Report Type: Spontaneous
  Country: BR (occurrence: BR)
  Receive Date: 20160524
  Receipt Date: 20160930
  Transmission Date: 20161109
  Serious: Yes (Other)
  Sender: FDA-Public Use
  Company Number: BR-ABBVIE-16P-020-1636271-00

PATIENT
  Age: 4 Year
  Sex: Male
  Weight: 25 kg

DRUGS (3)
  1. DEPAKENE [Suspect]
     Active Substance: VALPROIC ACID
     Dosage: DECREASED DOSE
     Route: 048
  2. CORTICOSTEROID NOS [Suspect]
     Active Substance: CORTICOSTEROID NOS
     Indication: BONE MARROW DISORDER
     Dosage: 12 ML (5 HOURS INTERVAL)
     Route: 048
     Dates: start: 201604
  3. DEPAKENE [Suspect]
     Active Substance: VALPROIC ACID
     Indication: EPILEPSY
     Route: 048
     Dates: start: 2012

REACTIONS (10)
  - Inappropriate schedule of drug administration [Recovered/Resolved]
  - Infection [Recovering/Resolving]
  - Spinal cord infection [Recovered/Resolved]
  - Pharyngitis [Unknown]
  - Cardiovascular disorder [Recovering/Resolving]
  - Malaise [Not Recovered/Not Resolved]
  - Feeling cold [Recovering/Resolving]
  - Feeling hot [Not Recovered/Not Resolved]
  - Drug administered to patient of inappropriate age [Unknown]
  - Off label use [Unknown]

NARRATIVE: CASE EVENT DATE: 2012
